FAERS Safety Report 7659354-5 (Version None)
Quarter: 2011Q3

REPORT INFORMATION
  Report Type: 
  Country: None (occurrence: None)
  Receive Date: 20110802
  Receipt Date: 20110719
  Transmission Date: 20111222
  Serious: Yes (Other)
  Sender: FDA-Public Use
  Company Number: 2011P1007854

PATIENT
  Age: 63 Year
  Sex: Female

DRUGS (2)
  1. SYNTHROID [Concomitant]
  2. CLOBETASOL PROPIONATE OINTMENT USP 0.05% (NO PREF. NAME) [Suspect]
     Indication: RASH PAPULAR
     Dosage: QD
     Dates: start: 20080101, end: 20110201

REACTIONS (2)
  - VISION BLURRED [None]
  - GLAUCOMA [None]
